FAERS Safety Report 24277260 (Version 2)
Quarter: 2024Q3

REPORT INFORMATION
  Report Type: Spontaneous
  Country: KR (occurrence: KR)
  Receive Date: 20240903
  Receipt Date: 20240913
  Transmission Date: 20241017
  Serious: No
  Sender: ROCHE
  Company Number: KR-002147023-NVSC2024KR173592

PATIENT
  Age: 77 Year

DRUGS (1)
  1. LUCENTIS [Suspect]
     Active Substance: RANIBIZUMAB
     Indication: Neovascular age-related macular degeneration
     Dosage: 0.5 MG/  0.5 ML
     Route: 050

REACTIONS (2)
  - Drug ineffective [Unknown]
  - No adverse event [Unknown]
